FAERS Safety Report 9413389 (Version 1)
Quarter: 2013Q3

REPORT INFORMATION
  Report Type: Spontaneous
  Country: US (occurrence: None)
  Receive Date: 20130709
  Receipt Date: 20130709
  Transmission Date: 20140515
  Serious: Yes (Hospitalization)
  Sender: FDA-Public Use
  Company Number: AUR-APL-2009-00782

PATIENT
  Sex: Female

DRUGS (3)
  1. ALENDRONIC ACID (ALENDRONIC ACID) [Suspect]
     Indication: OSTEOPOROSIS
     Dosage: 70 MG/WEEK,
     Dates: start: 2000
  2. CALCIUM [Concomitant]
  3. VITAMIN D [Suspect]

REACTIONS (2)
  - Atypical femur fracture [None]
  - Fall [None]
